FAERS Safety Report 7074428 (Version 61)
Quarter: 2017Q4

REPORT INFORMATION
  Report Type: Report from Study
  Country: CA (occurrence: CA)
  Receive Date: 20090806
  Receipt Date: 20171017
  Transmission Date: 20180321
  Serious: Yes (Hospitalization, Other)
  Sender: FDA-Public Use
  Company Number: PHHY2009CA31665

PATIENT
  Age: 60 Year
  Sex: Female

DRUGS (9)
  1. MICARDIS PLUS [Concomitant]
     Active Substance: HYDROCHLOROTHIAZIDE\TELMISARTAN
     Indication: HYPERTENSION
     Dosage: 1 DF, QD (80/12.5)
     Route: 048
  2. VITAMIN B12 [Concomitant]
     Active Substance: CYANOCOBALAMIN
     Indication: PRODUCT USED FOR UNKNOWN INDICATION
     Route: 065
  3. SANDOSTATIN LAR DEPOT [Suspect]
     Active Substance: OCTREOTIDE ACETATE
     Indication: CARCINOID TUMOUR PULMONARY
     Dosage: 10 MG, QMO (EVERY FOUR WEEKS)
     Route: 030
     Dates: start: 20090814
  4. SOMATULINE LA [Concomitant]
     Active Substance: LANREOTIDE ACETATE
     Indication: PRODUCT USED FOR UNKNOWN INDICATION
     Route: 065
  5. ROCALTROL [Concomitant]
     Active Substance: CALCITRIOL
     Indication: PRODUCT USED FOR UNKNOWN INDICATION
     Dosage: 0.25 MG, BID
     Route: 048
  6. SANDOSTATIN LAR DEPOT [Suspect]
     Active Substance: OCTREOTIDE ACETATE
     Dosage: 30 MG, QMO (EVERY FOUR WEEKS)
     Route: 030
     Dates: start: 20100329
  7. DILTIAZEM CD [Concomitant]
     Active Substance: DILTIAZEM
     Indication: PRODUCT USED FOR UNKNOWN INDICATION
     Dosage: 120 MG, BID
     Route: 048
  8. SANDOSTATIN LAR DEPOT [Suspect]
     Active Substance: OCTREOTIDE ACETATE
     Dosage: 20 MG, QMO (EVERY FOUR WEEKS)
     Route: 030
     Dates: end: 20100303
  9. SANDOSTATIN [Suspect]
     Active Substance: OCTREOTIDE ACETATE
     Indication: CARCINOID TUMOUR PULMONARY
     Dosage: 50 UG, ONCE/SINGLE (TEST DOSE)
     Route: 058
     Dates: start: 20090724, end: 20090724

REACTIONS (50)
  - Gastrointestinal disorder [Not Recovered/Not Resolved]
  - Influenza like illness [Unknown]
  - Urinary tract infection [Unknown]
  - Seasonal allergy [Unknown]
  - Dyspepsia [Unknown]
  - Injection site erythema [Unknown]
  - Injection site induration [Unknown]
  - Abdominal discomfort [Unknown]
  - Palpitations [Unknown]
  - Malaise [Unknown]
  - Dysphagia [Unknown]
  - Gout [Unknown]
  - Injection site mass [Unknown]
  - Needle issue [Unknown]
  - Abdominal pain [Unknown]
  - Weight decreased [Unknown]
  - Arthralgia [Unknown]
  - Insomnia [Unknown]
  - Peripheral swelling [Unknown]
  - Dyspnoea [Not Recovered/Not Resolved]
  - Diarrhoea [Not Recovered/Not Resolved]
  - Malignant neoplasm progression [Unknown]
  - Urinary incontinence [Unknown]
  - Abdominal pain upper [Unknown]
  - Blood glucose increased [Unknown]
  - Drug dispensing error [Unknown]
  - Blood pressure increased [Unknown]
  - Bowel movement irregularity [Unknown]
  - Acne [Unknown]
  - Asthenia [Unknown]
  - Injection site pain [Unknown]
  - Rectal haemorrhage [Unknown]
  - Nervousness [Unknown]
  - Pyrexia [Unknown]
  - Photopsia [Recovered/Resolved]
  - Fatigue [Unknown]
  - Diabetes mellitus [Not Recovered/Not Resolved]
  - Bone pain [Unknown]
  - Anxiety [Unknown]
  - Cough [Unknown]
  - Muscle spasms [Unknown]
  - Erythema [Unknown]
  - Regurgitation [Unknown]
  - Osteoarthritis [Unknown]
  - Pain [Unknown]
  - Seborrhoea [Unknown]
  - Nausea [Unknown]
  - Dizziness [Unknown]
  - Injection site haemorrhage [Unknown]
  - Product deposit [Unknown]

NARRATIVE: CASE EVENT DATE: 20090814
